FAERS Safety Report 16430959 (Version 1)
Quarter: 2019Q2

REPORT INFORMATION
  Report Type: Spontaneous
  Country: CN (occurrence: CN)
  Receive Date: 20190614
  Receipt Date: 20190614
  Transmission Date: 20190711
  Serious: Yes (Hospitalization, Other)
  Sender: FDA-Public Use
  Company Number: CN-ROCHE-2326470

PATIENT
  Age: 62 Year
  Sex: Male

DRUGS (17)
  1. CYCLOPHOSPHAMIDE. [Concomitant]
     Active Substance: CYCLOPHOSPHAMIDE
     Indication: NON-HODGKIN^S LYMPHOMA
  2. CYCLOPHOSPHAMIDE. [Concomitant]
     Active Substance: CYCLOPHOSPHAMIDE
     Indication: DIFFUSE LARGE B-CELL LYMPHOMA
  3. DOXORUBICIN [Concomitant]
     Active Substance: DOXORUBICIN
     Indication: NON-HODGKIN^S LYMPHOMA
  4. ENTECAVIR. [Concomitant]
     Active Substance: ENTECAVIR
     Dosage: PREVENT HEPATITIS B VIRUS ACTIVATION
     Route: 065
  5. METHOTREXATE. [Concomitant]
     Active Substance: METHOTREXATE
     Indication: DIFFUSE LARGE B-CELL LYMPHOMA
  6. DOXORUBICIN [Concomitant]
     Active Substance: DOXORUBICIN
     Indication: DIFFUSE LARGE B-CELL LYMPHOMA
  7. VINCRISTINE [Concomitant]
     Active Substance: VINCRISTINE
     Indication: NON-HODGKIN^S LYMPHOMA
  8. DEXAMETHASONE. [Concomitant]
     Active Substance: DEXAMETHASONE
     Indication: DIFFUSE LARGE B-CELL LYMPHOMA
  9. VINCRISTINE [Concomitant]
     Active Substance: VINCRISTINE
     Indication: DIFFUSE LARGE B-CELL LYMPHOMA
  10. PREDNISONE. [Concomitant]
     Active Substance: PREDNISONE
     Indication: DIFFUSE LARGE B-CELL LYMPHOMA
  11. CYTARABINE. [Concomitant]
     Active Substance: CYTARABINE
     Indication: DIFFUSE LARGE B-CELL LYMPHOMA
  12. RITUXIMAB. [Suspect]
     Active Substance: RITUXIMAB
     Indication: NON-HODGKIN^S LYMPHOMA
     Route: 065
  13. RITUXIMAB. [Suspect]
     Active Substance: RITUXIMAB
     Indication: DIFFUSE LARGE B-CELL LYMPHOMA
  14. PREDNISONE. [Concomitant]
     Active Substance: PREDNISONE
     Indication: NON-HODGKIN^S LYMPHOMA
  15. METHOTREXATE. [Concomitant]
     Active Substance: METHOTREXATE
     Indication: NON-HODGKIN^S LYMPHOMA
     Route: 037
  16. CYTARABINE. [Concomitant]
     Active Substance: CYTARABINE
     Indication: NON-HODGKIN^S LYMPHOMA
     Route: 037
  17. DEXAMETHASONE. [Concomitant]
     Active Substance: DEXAMETHASONE
     Indication: NON-HODGKIN^S LYMPHOMA
     Route: 037

REACTIONS (11)
  - Temperature intolerance [Unknown]
  - White blood cell count decreased [Unknown]
  - Coagulopathy [Unknown]
  - White blood cell count increased [Recovered/Resolved]
  - Pyrexia [Recovered/Resolved]
  - Platelet count decreased [Recovered/Resolved]
  - Hepatic function abnormal [Unknown]
  - Herpes zoster [Recovering/Resolving]
  - Bone marrow failure [Unknown]
  - Jaundice [Recovering/Resolving]
  - Lymphocyte count increased [Recovering/Resolving]

NARRATIVE: CASE EVENT DATE: 20161030
